FAERS Safety Report 9760276 (Version 2)
Quarter: 2014Q1

REPORT INFORMATION
  Report Type: Spontaneous
  Country: JP (occurrence: JP)
  Receive Date: 20131216
  Receipt Date: 20140102
  Transmission Date: 20141002
  Serious: Yes (Death, Other)
  Sender: FDA-Public Use
  Company Number: JP-ACTELION-A-CH2013-92453

PATIENT
  Age: 42 Year
  Sex: Male

DRUGS (2)
  1. TRACLEER [Suspect]
     Indication: PULMONARY VENO-OCCLUSIVE DISEASE
     Dosage: UNK
     Route: 048
     Dates: start: 2007, end: 2007
  2. FLOLAN [Concomitant]
     Indication: PULMONARY ARTERIAL HYPERTENSION

REACTIONS (4)
  - Pulmonary veno-occlusive disease [Fatal]
  - Right ventricular failure [Fatal]
  - Pyrexia [Unknown]
  - Pneumonia [Unknown]
